FAERS Safety Report 6076685-3 (Version None)
Quarter: 2009Q1

REPORT INFORMATION
  Report Type: 
  Country: None (occurrence: None)
  Receive Date: 20090213
  Receipt Date: 20090203
  Transmission Date: 20090719
  Serious: Yes (Other)
  Sender: FDA-Public Use
  Company Number: PHEH2009US01389

PATIENT
  Sex: Female

DRUGS (1)
  1. FEMARA [Suspect]
     Dosage: 2.5 MG, UNK

REACTIONS (5)
  - CARDIAC OPERATION [None]
  - CORONARY ARTERY DISEASE [None]
  - MITRAL VALVE INCOMPETENCE [None]
  - MITRAL VALVE REPLACEMENT [None]
  - MYOCARDIAL INFARCTION [None]
